FAERS Safety Report 6496734-8 (Version None)
Quarter: 2009Q4

REPORT INFORMATION
  Report Type: 
  Country: None (occurrence: None)
  Receive Date: 20091211
  Receipt Date: 20091125
  Transmission Date: 20100525
  Serious: Yes (Hospitalization, Other)
  Sender: FDA-Public Use
  Company Number: 1-19672893

PATIENT
  Age: 58 Year
  Sex: Male

DRUGS (8)
  1. WARFARIN SODIUM [Suspect]
     Indication: THROMBOSIS PROPHYLAXIS
     Dosage: UNK, ONCE DAILY, ORAL
     Route: 048
     Dates: start: 20090604, end: 20090627
  2. VALSARTAN [Concomitant]
  3. ISOSORBIDE MONONITRATE [Concomitant]
  4. PENTOXIFYLLINE [Concomitant]
  5. CLOPIDOGREL [Concomitant]
  6. BENZBROMARONE [Concomitant]
  7. FLUDIAZEPAM [Concomitant]
  8. DILTIAZEM [Concomitant]

REACTIONS (1)
  - HEPATITIS ACUTE [None]
